FAERS Safety Report 5304342-7 (Version None)
Quarter: 2007Q2

REPORT INFORMATION
  Report Type: 
  Country: None (occurrence: None)
  Receive Date: 20070413
  Receipt Date: 20070404
  Transmission Date: 20071010
  Serious: Yes (Hospitalization)
  Sender: FDA-Public Use
  Company Number: 2006BI016768

PATIENT
  Sex: Female

DRUGS (13)
  1. AVONEX [Suspect]
     Indication: MULTIPLE SCLEROSIS
     Dosage: 30 UG; QW; IM
     Route: 030
     Dates: start: 20030321, end: 20060801
  2. AVONEX [Suspect]
     Indication: MULTIPLE SCLEROSIS
     Dosage: 30 UG; QW; IM
     Route: 030
     Dates: start: 20060901
  3. OXYCODONE HCL [Concomitant]
  4. FLEXERIL [Concomitant]
  5. SERTRALINE [Concomitant]
  6. LITHIUM CARBONATE [Concomitant]
  7. RANITIDINE [Concomitant]
  8. FUROSEMIDE [Concomitant]
  9. LEVOTHYROXINE SODIUM [Concomitant]
  10. LISINOPRIL [Concomitant]
  11. ESTRADIOL [Concomitant]
  12. ALPRAZOLAM [Concomitant]
  13. METFORMIN HCL [Concomitant]

REACTIONS (14)
  - ABDOMINAL PAIN [None]
  - BIPOLAR DISORDER [None]
  - COLLAPSE OF LUNG [None]
  - CONDITION AGGRAVATED [None]
  - CYST [None]
  - IRRITABLE BOWEL SYNDROME [None]
  - LOBAR PNEUMONIA [None]
  - LUNG DISORDER [None]
  - PLEURAL EFFUSION [None]
  - PNEUMONIA [None]
  - RETROGRADE AMNESIA [None]
  - SMALL INTESTINAL OBSTRUCTION [None]
  - TREATMENT NONCOMPLIANCE [None]
  - WHITE BLOOD CELL COUNT INCREASED [None]
